FAERS Safety Report 4543683-8 (Version None)
Quarter: 2004Q4

REPORT INFORMATION
  Report Type: 
  Country: None (occurrence: None)
  Receive Date: 20041229
  Receipt Date: 20041229
  Transmission Date: 20050328
  Serious: No
  Sender: FDA-Public Use
  Company Number: None

PATIENT
  Age: 34 Year
  Sex: Male
  Weight: 72.5755 kg

DRUGS (1)
  1. GLUCOVANCE [Suspect]
     Indication: BLOOD GLUCOSE INCREASED
     Dosage: 1 TABLET   IN THE MORNING
     Dates: start: 20031006, end: 20041216

REACTIONS (1)
  - ALANINE AMINOTRANSFERASE INCREASED [None]
